FAERS Safety Report 9565480 (Version 1)
Quarter: 2013Q3

REPORT INFORMATION
  Report Type: Spontaneous
  Country: PT (occurrence: PT)
  Receive Date: 20130930
  Receipt Date: 20130930
  Transmission Date: 20140515
  Serious: Yes (Hospitalization, Other)
  Sender: FDA-Public Use
  Company Number: PT-AMGEN-PRTSP2013067903

PATIENT
  Sex: Female

DRUGS (2)
  1. VECTIBIX [Suspect]
     Indication: COLORECTAL CANCER METASTATIC
     Dosage: UNK
     Route: 065
     Dates: start: 20130906
  2. CHEMOTHERAPEUTICS [Concomitant]
     Indication: COLORECTAL CANCER METASTATIC
     Dosage: UNK

REACTIONS (6)
  - Mineral deficiency [Unknown]
  - Tetany [Unknown]
  - Blood magnesium decreased [Unknown]
  - Blood potassium decreased [Unknown]
  - Blood calcium decreased [Unknown]
  - Asthenia [Unknown]
